FAERS Safety Report 4603161-4 (Version None)
Quarter: 2005Q1

REPORT INFORMATION
  Report Type: 
  Country: None (occurrence: None)
  Receive Date: 20050308
  Receipt Date: 20050301
  Transmission Date: 20050727
  Serious: Yes (Other)
  Sender: FDA-Public Use
  Company Number: 05-03-0331

PATIENT
  Age: 72 Year
  Sex: Female

DRUGS (2)
  1. HYDROCHLOROTHIAZIDE [Suspect]
     Indication: HYPERTENSION
     Dosage: 25IMG QD ORAL
     Route: 048
  2. CALCIUM CARBONATE [Concomitant]

REACTIONS (2)
  - CHOLESTASIS [None]
  - DRUG INEFFECTIVE [None]
